FAERS Safety Report 23568994 (Version 2)
Quarter: 2025Q4

REPORT INFORMATION
  Report Type: Spontaneous
  Country: CN (occurrence: CN)
  Receive Date: 20240227
  Receipt Date: 20251111
  Transmission Date: 20260118
  Serious: Yes (Hospitalization, Other)
  Sender: ANXIN PHARMA
  Company Number: CN-QILU TIANHE PHARMACEUTICAL CO. LTD-QLT-000006-2024

PATIENT
  Age: 75 Year
  Sex: Female

DRUGS (15)
  1. PIPERACILLIN AND TAZOBACTAM [Suspect]
     Active Substance: PIPERACILLIN SODIUM\TAZOBACTAM SODIUM
     Indication: Pneumonia
     Dosage: 4.5 G EVERY 12 HOURS
     Route: 042
     Dates: start: 2023, end: 2023
  2. PIPERACILLIN AND TAZOBACTAM [Suspect]
     Active Substance: PIPERACILLIN SODIUM\TAZOBACTAM SODIUM
     Dosage: 4.5 G EVERY 12 HOURS
     Route: 042
     Dates: start: 2023, end: 2023
  3. PIPERACILLIN AND TAZOBACTAM [Suspect]
     Active Substance: PIPERACILLIN SODIUM\TAZOBACTAM SODIUM
     Dosage: 4.5 G EVERY 12 HOURS
     Route: 042
     Dates: start: 2023, end: 2023
  4. IRBESARTAN [Concomitant]
     Active Substance: IRBESARTAN
     Indication: Hypertension
     Dosage: UNK
     Route: 065
  5. METHYLPREDNISOLONE SODIUM SUCCINATE [Concomitant]
     Active Substance: METHYLPREDNISOLONE SODIUM SUCCINATE
     Dosage: 20 MG EVERY 12 HOURS
     Route: 042
     Dates: start: 2023
  6. METHYLPREDNISOLONE SODIUM SUCCINATE [Concomitant]
     Active Substance: METHYLPREDNISOLONE SODIUM SUCCINATE
     Dosage: 40 MG
     Route: 042
     Dates: start: 2023
  7. IBUPROFEN [Concomitant]
     Active Substance: IBUPROFEN
     Dosage: 0.1 AS NECCESSARY
     Route: 048
     Dates: start: 2023
  8. IBUPROFEN [Concomitant]
     Active Substance: IBUPROFEN
  9. GLUTATHIONE [Concomitant]
     Active Substance: GLUTATHIONE
     Indication: Liver injury
     Dosage: 0.4 G PER DAY
     Route: 048
     Dates: start: 2023
  10. VALSARTAN [Concomitant]
     Active Substance: VALSARTAN
     Dosage: 80 MG QD
     Route: 048
     Dates: start: 2023
  11. NIFEDIPINE [Concomitant]
     Active Substance: NIFEDIPINE
     Dosage: 30 MG QD
     Route: 048
     Dates: start: 2023
  12. METHOTREXATE [Concomitant]
     Active Substance: METHOTREXATE
     Indication: Immunosuppression
     Dosage: 10 MG EVERY WEEK
     Route: 048
     Dates: start: 2023
  13. POTASSIUM CHLORIDE [Concomitant]
     Active Substance: POTASSIUM CHLORIDE
     Indication: Mineral supplementation
     Dosage: POTASSIUM CHLORIDE PUMP AT 30 MG ST IVVP
     Route: 042
     Dates: start: 2023
  14. POTASSIUM CITRATE [Concomitant]
     Active Substance: POTASSIUM CITRATE
     Indication: Mineral supplementation
     Dosage: 2 G TID
     Route: 048
     Dates: start: 2023
  15. ENOXAPARIN SODIUM [Concomitant]
     Active Substance: ENOXAPARIN SODIUM
     Dosage: 5000 U QD
     Route: 065
     Dates: start: 2023

REACTIONS (8)
  - Cardiac failure [Recovered/Resolved]
  - Myocardial injury [Recovered/Resolved]
  - Hepatic function abnormal [Recovered/Resolved]
  - Myocarditis [Recovered/Resolved]
  - Pericarditis [Recovered/Resolved]
  - Toxic encephalopathy [Recovered/Resolved]
  - Pyrexia [Recovered/Resolved]
  - Hypersensitivity [Recovered/Resolved]

NARRATIVE: CASE EVENT DATE: 20230101
